FAERS Safety Report 10879031 (Version 1)
Quarter: 2015Q1

REPORT INFORMATION
  Report Type: Spontaneous
  Country: US (occurrence: None)
  Receive Date: 20150224
  Receipt Date: 20150224
  Transmission Date: 20150721
  Serious: Yes (Hospitalization)
  Sender: FDA-Public Use
  Company Number: None

PATIENT
  Age: 74 Year
  Sex: Male
  Weight: 101 kg

DRUGS (17)
  1. ASPIRIN. [Concomitant]
     Active Substance: ASPIRIN
  2. CLONAZEPAM. [Concomitant]
     Active Substance: CLONAZEPAM
  3. RIVAROXABAN [Concomitant]
     Active Substance: RIVAROXABAN
  4. FISH OIL [Concomitant]
     Active Substance: FISH OIL
  5. GABAPENTIN. [Concomitant]
     Active Substance: GABAPENTIN
  6. SITAGLIPTIN [Concomitant]
     Active Substance: SITAGLIPTIN
  7. VALSARTAN. [Concomitant]
     Active Substance: VALSARTAN
  8. XARELTO [Suspect]
     Active Substance: RIVAROXABAN
     Indication: CEREBROVASCULAR ACCIDENT PROPHYLAXIS
     Dosage: 1 TABLET QD ORAL
     Route: 048
     Dates: start: 20140314, end: 20140722
  9. SERTRALINE [Concomitant]
     Active Substance: SERTRALINE HYDROCHLORIDE
  10. SIMVASTATIN. [Concomitant]
     Active Substance: SIMVASTATIN
  11. CARVEDILOL. [Concomitant]
     Active Substance: CARVEDILOL
  12. EPLERENONE. [Concomitant]
     Active Substance: EPLERENONE
  13. CYANCOBALAMIN [Concomitant]
  14. GLIPIZIDE. [Concomitant]
     Active Substance: GLIPIZIDE
  15. XARELTO [Suspect]
     Active Substance: RIVAROXABAN
     Indication: ATRIAL FIBRILLATION
     Dosage: 1 TABLET QD ORAL
     Route: 048
     Dates: start: 20140314, end: 20140722
  16. FINASTERIDE. [Concomitant]
     Active Substance: FINASTERIDE
  17. FUROSEMIDE. [Concomitant]
     Active Substance: FUROSEMIDE

REACTIONS (8)
  - Faeces discoloured [None]
  - Dyspnoea exertional [None]
  - Gastritis haemorrhagic [None]
  - Haemoglobin decreased [None]
  - Asthenia [None]
  - Fatigue [None]
  - Pleuritic pain [None]
  - Occult blood positive [None]

NARRATIVE: CASE EVENT DATE: 20140722
